FAERS Safety Report 22996307 (Version 3)
Quarter: 2023Q4

REPORT INFORMATION
  Report Type: Spontaneous
  Country: JP (occurrence: JP)
  Receive Date: 20230927
  Receipt Date: 20231128
  Transmission Date: 20240109
  Serious: Yes (Hospitalization, Other)
  Sender: FDA-Public Use
  Company Number: JP-SA-2023SA293318

PATIENT
  Age: 61 Year
  Sex: Male
  Weight: 63 kg

DRUGS (5)
  1. DUPIXENT [Suspect]
     Active Substance: DUPILUMAB
     Indication: Chronic eosinophilic rhinosinusitis
     Dosage: 300 MG, QOW
     Route: 058
     Dates: start: 20230816, end: 20230830
  2. MONTELUKAST SODIUM [Concomitant]
     Active Substance: MONTELUKAST SODIUM
     Indication: Sinusitis
     Dosage: 10 MG, QD
     Route: 048
     Dates: start: 20230612
  3. CARBOCYSTEINE [Concomitant]
     Active Substance: CARBOCYSTEINE
     Indication: Sinusitis
     Dosage: 500 MG, BID
     Route: 048
     Dates: start: 20230612
  4. GLYCOPYRROLATE\INDACATEROL\MOMETASONE FUROATE [Concomitant]
     Active Substance: GLYCOPYRROLATE\INDACATEROL\MOMETASONE FUROATE
     Indication: Asthma
     Dosage: UNK UNK, QD
     Route: 055
     Dates: start: 20230629
  5. PROCATEROL HYDROCHLORIDE [Concomitant]
     Active Substance: PROCATEROL HYDROCHLORIDE
     Indication: Dyspnoea
     Route: 065

REACTIONS (10)
  - Eosinophilic granulomatosis with polyangiitis [Recovered/Resolved]
  - Hypoaesthesia [Recovering/Resolving]
  - Oedema peripheral [Recovering/Resolving]
  - Vasculitis [Recovered/Resolved]
  - Ecchymosis [Recovered/Resolved]
  - Pain in extremity [Recovering/Resolving]
  - Sensory disturbance [Recovered/Resolved]
  - Movement disorder [Recovered/Resolved]
  - Dysstasia [Recovered/Resolved]
  - Dermatitis contact [Recovered/Resolved]

NARRATIVE: CASE EVENT DATE: 20230901
